FAERS Safety Report 8195539-X (Version None)
Quarter: 2012Q1

REPORT INFORMATION
  Report Type: 
  Country: None (occurrence: None)
  Receive Date: 20120308
  Receipt Date: 20120306
  Transmission Date: 20120608
  Serious: Yes (Death, Life-Threatening, Hospitalization)
  Sender: FDA-Public Use
  Company Number: PHHO2010DE15965

PATIENT
  Sex: Male

DRUGS (13)
  1. PANTOPRAZOLE [Concomitant]
  2. REMID [Concomitant]
  3. CLOPIDOGREL BISULFATE [Concomitant]
  4. DURAGESIC-100 [Concomitant]
  5. IMATINIB MESYLATE [Suspect]
     Indication: CHRONIC MYELOID LEUKAEMIA
     Dosage: 400 MG, QD
     Route: 048
     Dates: start: 20090213
  6. TORSEMIDE [Concomitant]
  7. POTASSIUM CHLORIDE [Concomitant]
  8. RAMIPRIL [Concomitant]
  9. SPIRIVA [Concomitant]
  10. OXIS [Concomitant]
  11. FASTURTEC [Concomitant]
  12. NOVALGIN [Concomitant]
  13. HYDROXYUREA [Concomitant]

REACTIONS (5)
  - CONCOMITANT DISEASE PROGRESSION [None]
  - STAPHYLOCOCCAL SEPSIS [None]
  - PERFORMANCE STATUS DECREASED [None]
  - HAEMORRHAGE [None]
  - PYREXIA [None]
